FAERS Safety Report 7414348-X (Version None)
Quarter: 2011Q2

REPORT INFORMATION
  Report Type: 
  Country: None (occurrence: None)
  Receive Date: 20110414
  Receipt Date: 20110406
  Transmission Date: 20111010
  Serious: Yes (Death, Other)
  Sender: FDA-Public Use
  Company Number: GB-JNJFOC-20091004303

PATIENT
  Sex: Female

DRUGS (20)
  1. FUROSEMIDE [Concomitant]
     Indication: ILL-DEFINED DISORDER
     Route: 048
  2. LACTULOSE [Concomitant]
     Indication: ILL-DEFINED DISORDER
     Route: 048
  3. AMOXICILLIN TRIHYDRATE [Concomitant]
     Indication: ILL-DEFINED DISORDER
     Route: 065
  4. ROPINIROLE [Suspect]
     Route: 048
  5. FORTISIP [Concomitant]
     Indication: ILL-DEFINED DISORDER
     Route: 048
  6. FORTISIP [Concomitant]
     Route: 048
  7. CARBIMAZOLE [Concomitant]
     Indication: ILL-DEFINED DISORDER
     Route: 048
  8. RISPERDAL [Suspect]
     Indication: PARKINSON'S DISEASE
     Route: 048
  9. ROPINIROLE [Suspect]
     Indication: PARKINSON'S DISEASE
     Route: 048
  10. SINEMET [Concomitant]
     Indication: ILL-DEFINED DISORDER
     Route: 048
  11. SINEMET [Concomitant]
     Indication: ILL-DEFINED DISORDER
     Route: 048
  12. CARBIDOPA [Concomitant]
     Indication: PARKINSON'S DISEASE
     Route: 065
  13. LEVODOPA [Concomitant]
     Indication: PARKINSON'S DISEASE
     Route: 065
  14. BISOPROLOL [Concomitant]
     Indication: ILL-DEFINED DISORDER
  15. ASPIRIN [Concomitant]
     Indication: ILL-DEFINED DISORDER
     Route: 048
  16. SINEMET CR [Concomitant]
     Indication: ILL-DEFINED DISORDER
     Route: 048
  17. IRON [Concomitant]
     Indication: ILL-DEFINED DISORDER
     Route: 048
  18. ROPINIROLE [Suspect]
     Route: 048
  19. SPARTEINE SULFATE [Concomitant]
     Indication: PRODUCT USED FOR UNKNOWN INDICATION
     Route: 048
  20. DIGOXIN [Concomitant]
     Indication: ILL-DEFINED DISORDER
     Route: 048

REACTIONS (3)
  - OFF LABEL USE [None]
  - DEATH [None]
  - WRONG DRUG ADMINISTERED [None]
